FAERS Safety Report 24306184 (Version 2)
Quarter: 2024Q3

REPORT INFORMATION
  Report Type: Report from Study
  Country: US (occurrence: US)
  Receive Date: 20240911
  Receipt Date: 20240913
  Transmission Date: 20241017
  Serious: Yes (Other)
  Sender: ABBVIE
  Company Number: US-ABBVIE-5909846

PATIENT
  Sex: Male

DRUGS (1)
  1. VENCLEXTA [Suspect]
     Active Substance: VENETOCLAX
     Indication: Chronic lymphocytic leukaemia
     Dosage: STRENGTH- 100 MG?TAKE 2 TABLET(S) BY MOUTH DAILY
     Route: 048

REACTIONS (2)
  - Portal hypertension [Unknown]
  - Abdominal distension [Unknown]
